FAERS Safety Report 6072989-9 (Version None)
Quarter: 2009Q1

REPORT INFORMATION
  Report Type: 
  Country: None (occurrence: None)
  Receive Date: 20090209
  Receipt Date: 20090209
  Transmission Date: 20090719
  Serious: Yes (Other)
  Sender: FDA-Public Use
  Company Number: None

PATIENT
  Age: 73 Year
  Sex: Female
  Weight: 51.7101 kg

DRUGS (1)
  1. BONIVA [Suspect]
     Indication: OSTEOPOROSIS
     Dosage: EVERY 3 MONTHS IV
     Route: 042
     Dates: start: 20080420, end: 20080724

REACTIONS (3)
  - GASTRIC DISORDER [None]
  - HEADACHE [None]
  - INFLUENZA LIKE ILLNESS [None]
